FAERS Safety Report 6276956-1 (Version None)
Quarter: 2009Q3

REPORT INFORMATION
  Report Type: 
  Country: None (occurrence: None)
  Receive Date: 20090722
  Receipt Date: 20081029
  Transmission Date: 20100115
  Serious: No
  Sender: FDA-Public Use
  Company Number: US-BRISTOL-MYERS SQUIBB COMPANY-14389696

PATIENT
  Sex: Female

DRUGS (8)
  1. COUMADIN [Suspect]
  2. CELEBREX [Concomitant]
  3. NEXIUM [Concomitant]
  4. MICARDIS [Concomitant]
  5. DETROL [Concomitant]
  6. PLAVIX [Concomitant]
  7. ALLEGRA D 24 HOUR [Concomitant]
  8. ZOCOR [Concomitant]

REACTIONS (1)
  - INTERNATIONAL NORMALISED RATIO FLUCTUATION [None]
